FAERS Safety Report 19059415 (Version 1)
Quarter: 2021Q1

REPORT INFORMATION
  Report Type: Spontaneous
  Country: US (occurrence: US)
  Receive Date: 20210325
  Receipt Date: 20210325
  Transmission Date: 20210420
  Serious: Yes (Other)
  Sender: FDA-Public Use
  Company Number: US-ALKERMES INC.-ALK-2021-001393

PATIENT
  Sex: Female

DRUGS (2)
  1. ARISTADA [Suspect]
     Active Substance: ARIPIPRAZOLE LAUROXIL
     Indication: PRODUCT USED FOR UNKNOWN INDICATION
     Dosage: 1064 MILLIGRAM, Q8WK
     Route: 030
     Dates: start: 20210129, end: 20210129
  2. ARISTADA [Suspect]
     Active Substance: ARIPIPRAZOLE LAUROXIL
     Dosage: 1064 MILLIGRAM, Q8WK
     Route: 030
     Dates: start: 201912, end: 201912

REACTIONS (3)
  - Abortion spontaneous [Recovered/Resolved]
  - Benign hydatidiform mole [Recovered/Resolved]
  - Pregnancy [Recovered/Resolved]
